FAERS Safety Report 14735179 (Version 1)
Quarter: 2018Q2

REPORT INFORMATION
  Report Type: Spontaneous
  Country: GB (occurrence: GB)
  Receive Date: 20180409
  Receipt Date: 20180409
  Transmission Date: 20180711
  Serious: Yes (Other)
  Sender: FDA-Public Use
  Company Number: GB-TEVA-2018-GB-879125

PATIENT
  Age: 11 Year
  Sex: Male

DRUGS (4)
  1. SERTRALINE [Suspect]
     Active Substance: SERTRALINE HYDROCHLORIDE
     Indication: ANXIETY
     Route: 048
     Dates: start: 20180109
  2. DIAZEPAM. [Suspect]
     Active Substance: DIAZEPAM
     Indication: AGITATION
     Dosage: 3MG THREE TIMES A DAY PLUS 3MG ONCE DAILY AS REQUIRED.
     Route: 048
     Dates: start: 20180111
  3. CIRCADIN [Suspect]
     Active Substance: MELATONIN
     Indication: INSOMNIA
     Route: 048
     Dates: start: 20180109
  4. ARIPIPRAZOLE. [Suspect]
     Active Substance: ARIPIPRAZOLE
     Indication: ANXIETY
     Route: 048
     Dates: start: 20180116

REACTIONS (5)
  - Hallucinations, mixed [Recovered/Resolved]
  - Anxiety [Recovered/Resolved]
  - Paradoxical drug reaction [Recovered/Resolved]
  - Jaundice [Recovered/Resolved]
  - Agitation [Recovered/Resolved]
